FAERS Safety Report 6371495-1 (Version None)
Quarter: 2009Q3

REPORT INFORMATION
  Report Type: 
  Country: None (occurrence: None)
  Receive Date: 20090923
  Receipt Date: 20071024
  Transmission Date: 20100115
  Serious: Yes (Hospitalization, Other)
  Sender: FDA-Public Use
  Company Number: US-ASTRAZENECA-2007UW09654

PATIENT
  Age: 68 Year
  Sex: Male
  Weight: 84.8 kg

DRUGS (3)
  1. SEROQUEL [Suspect]
     Indication: BIPOLAR DISORDER
     Route: 048
     Dates: start: 20020101, end: 20060701
  2. SEROQUEL [Suspect]
     Route: 048
     Dates: start: 20030826
  3. RISPERDAL [Concomitant]
     Indication: BIPOLAR DISORDER
     Dates: start: 20030611, end: 20060701

REACTIONS (4)
  - DEPRESSION [None]
  - DIABETES MELLITUS INADEQUATE CONTROL [None]
  - PAIN [None]
  - TYPE 2 DIABETES MELLITUS [None]
